FAERS Safety Report 23034244 (Version 1)
Quarter: 2023Q4

REPORT INFORMATION
  Report Type: Report from Study
  Country: SE (occurrence: DK)
  Receive Date: 20231005
  Receipt Date: 20231005
  Transmission Date: 20240109
  Serious: Yes (Hospitalization, Other)
  Sender: FDA-Public Use
  Company Number: SE-ASTELLAS-2023US029619

PATIENT
  Age: 56 Year
  Sex: Male

DRUGS (1)
  1. TACROLIMUS [Suspect]
     Active Substance: TACROLIMUS
     Indication: Product used for unknown indication
     Dosage: UNK UNK, UNKNOWN FREQ.
     Route: 065
     Dates: start: 20170814

REACTIONS (34)
  - Pulmonary function test decreased [Recovered/Resolved]
  - Anaemia [Recovered/Resolved]
  - Pain in extremity [Recovered/Resolved with Sequelae]
  - Urine albumin/creatinine ratio increased [Recovered/Resolved with Sequelae]
  - Gastric ulcer [Recovered/Resolved]
  - Bacterial infection [Recovered/Resolved]
  - Leukopenia [Recovered/Resolved]
  - Infection [Recovered/Resolved]
  - Dehydration [Recovered/Resolved]
  - Leukopenia [Recovered/Resolved]
  - Cytomegalovirus viraemia [Recovered/Resolved]
  - Fistula [Recovered/Resolved]
  - Viral infection [Recovered/Resolved]
  - Blood potassium increased [Recovered/Resolved]
  - Bacterial infection [Recovered/Resolved]
  - Leukopenia [Recovered/Resolved]
  - Viral infection [Recovered/Resolved]
  - Leukopenia [Recovered/Resolved]
  - Leukopenia [Recovered/Resolved]
  - Neutropenia [Recovered/Resolved]
  - Bacterial infection [Recovered/Resolved]
  - Transplant rejection [Recovered/Resolved]
  - Chest pain [Recovered/Resolved]
  - Herpes zoster [Recovered/Resolved]
  - Nerve compression [Recovered/Resolved]
  - Bacterial infection [Recovered/Resolved]
  - Rash erythematous [Recovered/Resolved]
  - Lung opacity [Recovered/Resolved with Sequelae]
  - Bacterial infection [Recovered/Resolved]
  - Pulmonary embolism [Recovered/Resolved]
  - Viral infection [Recovered/Resolved]
  - Atrial fibrillation [Recovered/Resolved]
  - Bacterial infection [Recovered/Resolved]
  - Complications of transplanted lung [Unknown]

NARRATIVE: CASE EVENT DATE: 20170814
